FAERS Safety Report 8458996-7 (Version None)
Quarter: 2012Q2

REPORT INFORMATION
  Report Type: 
  Country: None (occurrence: None)
  Receive Date: 20120622
  Receipt Date: 20120606
  Transmission Date: 20120825
  Serious: Yes (Other)
  Sender: FDA-Public Use
  Company Number: SE-ROCHE-1076577

PATIENT

DRUGS (2)
  1. ATACICEPT [Suspect]
     Indication: RHEUMATOID ARTHRITIS
     Dosage: FOR 25 WEEKS.
     Route: 058
  2. MABTHERA [Suspect]
     Indication: RHEUMATOID ARTHRITIS

REACTIONS (4)
  - GASTRITIS [None]
  - TRANSIENT ISCHAEMIC ATTACK [None]
  - HYPERSENSITIVITY [None]
  - RUPTURED CEREBRAL ANEURYSM [None]
